FAERS Safety Report 8430960-3 (Version None)
Quarter: 2012Q2

REPORT INFORMATION
  Report Type: 
  Country: None (occurrence: None)
  Receive Date: 20120612
  Receipt Date: 20120530
  Transmission Date: 20120825
  Serious: Yes (Death, Hospitalization, Other)
  Sender: FDA-Public Use
  Company Number: NL-CELGENEUS-114-21880-11121696

PATIENT
  Sex: Female

DRUGS (15)
  1. SIMVASTATIN [Concomitant]
     Dosage: 40 MILLIGRAM
     Route: 048
     Dates: start: 20091210
  2. REVLIMID [Suspect]
     Route: 048
     Dates: start: 20111103, end: 20111124
  3. DEXAMETHASONE [Concomitant]
     Dosage: 8 MILLIGRAM
     Route: 048
  4. ENALAPRIL/HCT [Concomitant]
     Indication: HYPERTENSION
     Dosage: 40 MILLIGRAM
     Route: 048
     Dates: start: 20000801
  5. REVLIMID [Suspect]
     Indication: MULTIPLE MYELOMA
     Route: 048
     Dates: start: 20110831
  6. METOCLOPRAMIDE [Concomitant]
     Dosage: 30 MILLIGRAM
     Route: 048
  7. LEVEMIR [Concomitant]
     Route: 030
     Dates: start: 19820101
  8. PANTOPRAZOLE [Concomitant]
     Dosage: 40 MILLIGRAM
     Route: 048
  9. SIMVASTATIN [Concomitant]
     Dosage: 20 MILLIGRAM
     Route: 048
     Dates: start: 20080212
  10. METOPROLOL [Concomitant]
     Indication: HYPERTENSION
     Dosage: 100 MILLIGRAM
     Route: 048
     Dates: start: 20000801
  11. HALDOL [Concomitant]
     Route: 048
  12. NOVORAPID [Concomitant]
     Indication: DIABETES MELLITUS
     Route: 030
     Dates: start: 19820101
  13. MOVIDONE [Concomitant]
     Route: 048
  14. ASCAL [Concomitant]
     Dosage: 80 MILLIGRAM
     Route: 048
     Dates: start: 20080801
  15. SIMVASTATIN [Concomitant]
     Dosage: 20 MILLIGRAM
     Route: 048

REACTIONS (3)
  - MULTIPLE MYELOMA [None]
  - BACK PAIN [None]
  - BONE PAIN [None]
